FAERS Safety Report 6386204-X (Version None)
Quarter: 2009Q4

REPORT INFORMATION
  Report Type: 
  Country: None (occurrence: None)
  Receive Date: 20091002
  Receipt Date: 20090925
  Transmission Date: 20100525
  Serious: Yes (Other)
  Sender: FDA-Public Use
  Company Number: GB-AMGEN-UK364911

PATIENT
  Age: 47 Year
  Sex: Female

DRUGS (4)
  1. NEULASTA [Suspect]
     Indication: CHEMOTHERAPY
     Route: 058
     Dates: start: 20090717
  2. FLUOROURACIL [Concomitant]
     Route: 065
     Dates: start: 20090716
  3. EPIRUBICIN [Concomitant]
     Route: 065
     Dates: start: 20090716
  4. CYCLOPHOSPHAMIDE [Concomitant]
     Route: 065
     Dates: start: 20090716

REACTIONS (2)
  - NEUTROPENIA [None]
  - THERAPEUTIC RESPONSE DECREASED [None]
